FAERS Safety Report 15826445 (Version 1)
Quarter: 2019Q1

REPORT INFORMATION
  Report Type: Spontaneous
  Country: GB (occurrence: GB)
  Receive Date: 20190115
  Receipt Date: 20190115
  Transmission Date: 20190417
  Serious: Yes (Other)
  Sender: FDA-Public Use
  Company Number: GB-MYLANLABS-2019M1002686

PATIENT
  Sex: Female

DRUGS (3)
  1. CLOPIDOGREL [Suspect]
     Active Substance: CLOPIDOGREL BISULFATE
     Indication: CARDIAC VENTRICULAR THROMBOSIS
     Dosage: UNK
  2. ASPIRIN                            /00002701/ [Interacting]
     Active Substance: ASPIRIN
     Indication: CARDIAC VENTRICULAR THROMBOSIS
     Dosage: UNK
  3. XARELTO [Interacting]
     Active Substance: RIVAROXABAN
     Indication: CARDIAC VENTRICULAR THROMBOSIS
     Dosage: UNK

REACTIONS (4)
  - Pulmonary embolism [Unknown]
  - Off label use [Unknown]
  - Haemoptysis [Unknown]
  - Drug interaction [Unknown]
